FAERS Safety Report 11845901 (Version 1)
Quarter: 2015Q4

REPORT INFORMATION
  Report Type: Spontaneous
  Country: US (occurrence: US)
  Receive Date: 20151217
  Receipt Date: 20151217
  Transmission Date: 20160305
  Serious: No
  Sender: FDA-Public Use
  Company Number: US-NOVOPROD-443404

PATIENT
  Age: 64 Year
  Sex: Female

DRUGS (1)
  1. LEVEMIR [Suspect]
     Active Substance: INSULIN DETEMIR
     Indication: DIABETES MELLITUS
     Dosage: UNK
     Route: 058

REACTIONS (5)
  - Asthenia [Unknown]
  - Amnesia [Unknown]
  - Visual impairment [Unknown]
  - Blood glucose increased [Recovering/Resolving]
  - Speech disorder [Unknown]
